FAERS Safety Report 13590151 (Version 1)
Quarter: 2017Q2

REPORT INFORMATION
  Report Type: Spontaneous
  Country: ES (occurrence: ES)
  Receive Date: 20170530
  Receipt Date: 20170530
  Transmission Date: 20170830
  Serious: Yes (Hospitalization, Other)
  Sender: FDA-Public Use
  Company Number: ES-PFIZER INC-2016115067

PATIENT
  Age: 42 Year
  Sex: Female

DRUGS (2)
  1. GEMCITABINE HYDROCHLORIDE. [Suspect]
     Active Substance: GEMCITABINE HYDROCHLORIDE
     Dosage: 300 MG/M2, WEEKLY (ONCE PER WEEK, GIVEN 4 HOURS BEFORE RADIATION)
  2. GEMCITABINE HYDROCHLORIDE. [Suspect]
     Active Substance: GEMCITABINE HYDROCHLORIDE
     Indication: ADENOCARCINOMA PANCREAS
     Dosage: TWO COURSES (A TOTAL OF SIX INFUSIONS)

REACTIONS (3)
  - Pseudocellulitis [Recovered/Resolved]
  - Bone marrow toxicity [Recovered/Resolved]
  - Hypoalbuminaemia [Recovered/Resolved]
